FAERS Safety Report 4974286-9 (Version None)
Quarter: 2006Q2

REPORT INFORMATION
  Report Type: 
  Country: None (occurrence: None)
  Receive Date: 20060417
  Receipt Date: 20051115
  Transmission Date: 20061013
  Serious: Yes (Hospitalization)
  Sender: FDA-Public Use
  Company Number: US-AVENTIS-200519349US

PATIENT
  Sex: Female

DRUGS (6)
  1. KETEK [Suspect]
     Indication: SINUSITIS
     Route: 048
     Dates: start: 20051007, end: 20051013
  2. LIPITOR [Concomitant]
     Dosage: DOSE: 10MG
  3. DIOVAN [Concomitant]
     Dosage: DOSE: 160MG
  4. HYDROCHLOROTHIAZIDE [Concomitant]
     Dosage: DOSE: 12.5MG
  5. CALCIUM GLUCONATE [Concomitant]
     Dosage: DOSE: UNKNOWN
  6. VITAMIN D [Concomitant]
     Dosage: DOSE: UNKNOWN

REACTIONS (14)
  - BLOOD BILIRUBIN INCREASED [None]
  - BLOOD BILIRUBIN UNCONJUGATED INCREASED [None]
  - BLOOD LACTATE DEHYDROGENASE INCREASED [None]
  - HAEMATOCRIT DECREASED [None]
  - HAEMOGLOBIN DECREASED [None]
  - HAEMOLYTIC ANAEMIA [None]
  - LYMPHOCYTE COUNT DECREASED [None]
  - MALAISE [None]
  - PROTHROMBIN TIME RATIO INCREASED [None]
  - RED BLOOD CELL COUNT DECREASED [None]
  - RED CELL DISTRIBUTION WIDTH INCREASED [None]
  - RETICULOCYTE COUNT INCREASED [None]
  - RETICULOCYTE PERCENTAGE INCREASED [None]
  - SERUM FERRITIN INCREASED [None]
